FAERS Safety Report 17682443 (Version 3)
Quarter: 2020Q4

REPORT INFORMATION
  Report Type: Report from Study
  Country: US (occurrence: US)
  Receive Date: 20200418
  Receipt Date: 20201006
  Transmission Date: 20210113
  Serious: No
  Sender: FDA-Public Use
  Company Number: NVSC2020US103981

PATIENT
  Age: 22 Year
  Sex: Male

DRUGS (2)
  1. COSENTYX [Suspect]
     Active Substance: SECUKINUMAB
     Dosage: 300 MG, QW (BENEATH THE SKIN,USUALLY VIA INJECTION)
     Route: 058
     Dates: start: 20200409
  2. COSENTYX [Suspect]
     Active Substance: SECUKINUMAB
     Indication: PSORIASIS
     Dosage: 300 MG, QMO
     Route: 058
     Dates: start: 20200408

REACTIONS (2)
  - Dry skin [Unknown]
  - Psoriasis [Unknown]

NARRATIVE: CASE EVENT DATE: 20200409
